FAERS Safety Report 5607811-5 (Version None)
Quarter: 2008Q1

REPORT INFORMATION
  Report Type: 
  Country: None (occurrence: None)
  Receive Date: 20080125
  Receipt Date: 20080115
  Transmission Date: 20080703
  Serious: Yes (Hospitalization)
  Sender: FDA-Public Use
  Company Number: AZADE200700448

PATIENT
  Age: 82 Year
  Sex: Male
  Weight: 84 kg

DRUGS (6)
  1. AZACITIDINE (AZACITIDINE) (INJECTION) [Suspect]
     Indication: MYELODYSPLASTIC SYNDROME
     Dosage: (75 MG/M2, DAILY X 7 DAYS), SUBCUTANEOUS
     Route: 058
     Dates: start: 20071030, end: 20071105
  2. ALLOPURINOL [Concomitant]
  3. CALCIUM (CALCIUM) [Concomitant]
  4. ALENDRONATE (ALENDRONATE SODIUM) [Concomitant]
  5. ESOMEPRAZOLE (ESOMEPRAZOLE) [Concomitant]
  6. PREDNISONE [Concomitant]

REACTIONS (1)
  - INJECTION SITE ABSCESS [None]
